FAERS Safety Report 6169285-8 (Version None)
Quarter: 2009Q2

REPORT INFORMATION
  Report Type: 
  Country: None (occurrence: None)
  Receive Date: 20090424
  Receipt Date: 20090414
  Transmission Date: 20091009
  Serious: Yes (Death)
  Sender: FDA-Public Use
  Company Number: SPV1-2009-00675

PATIENT
  Age: 36 Year
  Sex: Female

DRUGS (1)
  1. FOSRENOL [Suspect]

REACTIONS (5)
  - CARDIAC INFECTION [None]
  - CEREBROVASCULAR ACCIDENT [None]
  - DISEASE PROGRESSION [None]
  - PNEUMONIA [None]
  - RENAL FAILURE CHRONIC [None]
